FAERS Safety Report 20862699 (Version 5)
Quarter: 2022Q3

REPORT INFORMATION
  Report Type: Spontaneous
  Country: LT (occurrence: LT)
  Receive Date: 20220523
  Receipt Date: 20220713
  Transmission Date: 20221027
  Serious: Yes (Hospitalization, Other)
  Sender: FDA-Public Use
  Company Number: None

PATIENT
  Age: 50 Year
  Sex: Female
  Weight: 50 kg

DRUGS (8)
  1. PREGABALIN [Interacting]
     Active Substance: PREGABALIN
     Dosage: 675 MG, 9 UNITS
     Dates: start: 20220422, end: 20220422
  2. QUETIAPINE [Interacting]
     Active Substance: QUETIAPINE
     Dosage: 1400 MG, 7 UNITS
     Dates: start: 20220422, end: 20220422
  3. BISACODYL [Interacting]
     Active Substance: BISACODYL
     Dosage: 75 MG, 15 UNITS
     Dates: start: 20220422, end: 20220422
  4. METOPROLOL [Interacting]
     Active Substance: METOPROLOL
     Dosage: 380 MG, 4 UNITS
     Dates: start: 20220422, end: 20220422
  5. CLONAZEPAM [Interacting]
     Active Substance: CLONAZEPAM
     Dosage: 20 MG, 10 UNITS
     Dates: start: 20220422, end: 20220422
  6. DIAZEPAM [Interacting]
     Active Substance: DIAZEPAM
     Indication: Insomnia
     Dosage: 135 MG, 27 TABLETS
     Route: 048
     Dates: start: 20220422, end: 20220422
  7. DIAZEPAM [Interacting]
     Active Substance: DIAZEPAM
     Indication: Anxiety
  8. ITOPRIDE HYDROCHLORIDE [Interacting]
     Active Substance: ITOPRIDE HYDROCHLORIDE
     Dosage: 150 MG, 3 UNITS
     Dates: start: 20220422, end: 20220422

REACTIONS (8)
  - Intentional overdose [Unknown]
  - Medication error [Unknown]
  - Off label use [Unknown]
  - Drug interaction [Recovered/Resolved]
  - Suicide attempt [Recovered/Resolved]
  - Blood pressure decreased [Recovered/Resolved]
  - Sluggishness [Recovered/Resolved]
  - Alcohol interaction [Recovered/Resolved]

NARRATIVE: CASE EVENT DATE: 20220422
